FAERS Safety Report 6956381-8 (Version None)
Quarter: 2010Q3

REPORT INFORMATION
  Report Type: 
  Country: None (occurrence: None)
  Receive Date: 20100830
  Receipt Date: 20100820
  Transmission Date: 20110219
  Serious: Yes (Other)
  Sender: FDA-Public Use
  Company Number: A0878013A

PATIENT
  Sex: Female
  Weight: 19.5 kg

DRUGS (2)
  1. SERETIDE [Suspect]
     Indication: SINUSITIS
     Dosage: 1PUFF TWICE PER DAY
     Dates: start: 20100820
  2. AMOXICILLIN [Concomitant]
     Dosage: 5ML TWICE PER DAY
     Dates: start: 20100820

REACTIONS (2)
  - ANGINA PECTORIS [None]
  - PALPITATIONS [None]
